FAERS Safety Report 19078937 (Version 1)
Quarter: 2021Q1

REPORT INFORMATION
  Report Type: Spontaneous
  Country: JP (occurrence: JP)
  Receive Date: 20210331
  Receipt Date: 20210331
  Transmission Date: 20210420
  Serious: Yes (Other)
  Sender: FDA-Public Use
  Company Number: JP-009507513-2103JPN001381J

PATIENT
  Age: 56 Year
  Sex: Female
  Weight: 41 kg

DRUGS (1)
  1. KEYTRUDA [Suspect]
     Active Substance: PEMBROLIZUMAB
     Indication: UTERINE CANCER
     Dosage: 200 MILLIGRAM, Q3W
     Route: 041
     Dates: start: 202101, end: 202103

REACTIONS (2)
  - Venous thrombosis limb [Not Recovered/Not Resolved]
  - Altered state of consciousness [Unknown]

NARRATIVE: CASE EVENT DATE: 2021
